FAERS Safety Report 16692383 (Version 2)
Quarter: 2020Q3

REPORT INFORMATION
  Report Type: Spontaneous
  Country: US (occurrence: US)
  Receive Date: 20190812
  Receipt Date: 20200526
  Transmission Date: 20201104
  Serious: No
  Sender: FDA-Public Use
  Company Number: US-PFIZER INC-2019338809

PATIENT
  Age: 69 Year
  Sex: Female

DRUGS (61)
  1. DILTIAZEM HCL [Suspect]
     Active Substance: DILTIAZEM HYDROCHLORIDE
     Dosage: UNK
  2. NAPROXEN SODIUM. [Suspect]
     Active Substance: NAPROXEN SODIUM
     Dosage: UNK
  3. CAFFEINE. [Suspect]
     Active Substance: CAFFEINE
     Dosage: UNK
  4. CLONAZEPAM. [Suspect]
     Active Substance: CLONAZEPAM
     Dosage: UNK
  5. DIFLUNISAL. [Suspect]
     Active Substance: DIFLUNISAL
     Dosage: UNK
  6. SCOPOLAMINE AMINOXIDE [Suspect]
     Active Substance: SCOPOLAMINE N-OXIDE
     Dosage: UNK
  7. TERFENADINE [Suspect]
     Active Substance: TERFENADINE
     Dosage: UNK
  8. TRIAMCINOLONE [Suspect]
     Active Substance: TRIAMCINOLONE
     Dosage: UNK
  9. EPHEDRINE SULFATE. [Suspect]
     Active Substance: EPHEDRINE SULFATE
     Dosage: UNK
  10. METRONIDAZOLE. [Suspect]
     Active Substance: METRONIDAZOLE
     Dosage: UNK
  11. ACETAMINOPHEN. [Suspect]
     Active Substance: ACETAMINOPHEN
     Dosage: UNK
  12. BROMPHENIRAMINE [Suspect]
     Active Substance: BROMPHENIRAMINE
     Dosage: UNK
  13. SULFISOXAZOLE [Suspect]
     Active Substance: SULFISOXAZOLE
     Dosage: UNK
  14. ZAFIRLUKAST. [Suspect]
     Active Substance: ZAFIRLUKAST
     Dosage: UNK
  15. FUROSEMIDE. [Suspect]
     Active Substance: FUROSEMIDE
     Dosage: UNK
  16. TETRACYCLINE HCL [Suspect]
     Active Substance: TETRACYCLINE HYDROCHLORIDE
     Dosage: UNK
  17. CHLORPHENIRAMINE HYDROCHLORIDE. [Suspect]
     Active Substance: CHLORPHENIRAMINE HYDROCHLORIDE
     Dosage: UNK
  18. CLEMASTINE [Suspect]
     Active Substance: CLEMASTINE
     Dosage: UNK
  19. HYDROCODONE [Suspect]
     Active Substance: HYDROCODONE
     Dosage: UNK
  20. PSEUDOEPHEDRINE. [Suspect]
     Active Substance: PSEUDOEPHEDRINE HYDROCHLORIDE
     Dosage: UNK
  21. METOPROLOL TARTRATE. [Suspect]
     Active Substance: METOPROLOL TARTRATE
     Dosage: UNK
  22. ALCOHOL. [Suspect]
     Active Substance: ALCOHOL
     Dosage: UNK
  23. BECLOMETHASONE [Suspect]
     Active Substance: BECLOMETHASONE
     Dosage: UNK
  24. BUTALBITAL [Suspect]
     Active Substance: BUTALBITAL
     Dosage: UNK
  25. CYPROHEPTADINE. [Suspect]
     Active Substance: CYPROHEPTADINE
     Dosage: UNK
  26. IODINE. [Suspect]
     Active Substance: IODINE
     Dosage: UNK
  27. LISINOPRIL. [Suspect]
     Active Substance: LISINOPRIL
     Dosage: UNK
  28. TRIPROLIDINE [Suspect]
     Active Substance: TRIPROLIDINE
     Dosage: UNK
  29. DEXTROMETHORPHAN HYDROBROMIDE. [Suspect]
     Active Substance: DEXTROMETHORPHAN HYDROBROMIDE
     Dosage: UNK
  30. ASPARTAME [Suspect]
     Active Substance: ASPARTAME
     Dosage: UNK
  31. CODEINE [Suspect]
     Active Substance: CODEINE
     Dosage: UNK
  32. VITAMIN B COMPLEX [Suspect]
     Active Substance: CYANOCOBALAMIN\DEXPANTHENOL\NIACINAMIDE\PYRIDOXINE HYDROCHLORIDE\RIBOFLAVIN 5^-PHOSPHATE SODIUM\THIAMINE HYDROCHLORIDE\VITAMIN B COMPLEX
     Dosage: UNK
  33. MEPERIDINE HCL [Suspect]
     Active Substance: MEPERIDINE HYDROCHLORIDE
     Dosage: UNK
  34. PENTAZOCINE LACTATE [Suspect]
     Active Substance: PENTAZOCINE LACTATE
     Dosage: UNK
  35. CARBINOXAMINE [Suspect]
     Active Substance: CARBINOXAMINE
     Dosage: UNK
  36. ISOETHARINE. [Suspect]
     Active Substance: ISOETHARINE
     Dosage: UNK
  37. OXYCODONE [Suspect]
     Active Substance: OXYCODONE
     Dosage: UNK
  38. PHENYLEPHRINE [Suspect]
     Active Substance: PHENYLEPHRINE HYDROCHLORIDE
     Dosage: UNK
  39. PHENYLPROPANOLAMINE [Suspect]
     Active Substance: PHENYLPROPANOLAMINE
     Dosage: UNK
  40. DOXYCYCLINE HYCLATE. [Suspect]
     Active Substance: DOXYCYCLINE HYCLATE
     Dosage: UNK
  41. GUAIFENESIN. [Suspect]
     Active Substance: GUAIFENESIN
     Dosage: UNK
  42. HYDROMORPHONE HYDROCHLORIDE. [Suspect]
     Active Substance: HYDROMORPHONE HYDROCHLORIDE
     Dosage: UNK
  43. IBUPROFEN. [Suspect]
     Active Substance: IBUPROFEN
     Dosage: UNK
  44. SODIUM CROMOGLICATE [Suspect]
     Active Substance: CROMOLYN SODIUM
     Dosage: UNK
  45. PHENOBARBITAL. [Suspect]
     Active Substance: PHENOBARBITAL
     Dosage: UNK
  46. BITOLTEROL [Suspect]
     Active Substance: BITOLTEROL MESYLATE
     Dosage: UNK
  47. BITOLTEROL MESILATE [Suspect]
     Active Substance: BITOLTEROL MESYLATE
     Dosage: UNK
  48. CEPHALEXINE [Suspect]
     Active Substance: CEPHALEXIN
     Dosage: UNK
  49. FELODIPINE. [Suspect]
     Active Substance: FELODIPINE
     Dosage: UNK
  50. NITROFURANTOIN. [Suspect]
     Active Substance: NITROFURANTOIN
     Dosage: UNK
  51. PYRILAMINE. [Suspect]
     Active Substance: PYRILAMINE
     Dosage: UNK
  52. TETANUS TOXOID [Suspect]
     Active Substance: TETANUS TOXOIDS
     Dosage: UNK
  53. ERYTHROMYCIN. [Suspect]
     Active Substance: ERYTHROMYCIN
     Dosage: UNK
  54. THEOPHYLLINE [Suspect]
     Active Substance: THEOPHYLLINE ANHYDROUS
     Dosage: UNK
  55. ASPIRIN (E.C.) [Suspect]
     Active Substance: ASPIRIN
     Dosage: UNK
  56. BROMODIPHENHYDRAMINE. [Suspect]
     Active Substance: BROMODIPHENHYDRAMINE
     Dosage: UNK
  57. DEXCHLORPHENIRAMINE [Suspect]
     Active Substance: DEXCHLORPHENIRAMINE
     Dosage: UNK
  58. ETHYL ALCOHOL [Suspect]
     Active Substance: ALCOHOL
     Dosage: UNK
  59. METHSCOPOLAMINE BROMIDE. [Suspect]
     Active Substance: METHSCOPOLAMINE BROMIDE
     Dosage: UNK
  60. PROPOXYPHENE. [Suspect]
     Active Substance: PROPOXYPHENE
     Dosage: UNK
  61. TERBUTALINE [Suspect]
     Active Substance: TERBUTALINE
     Dosage: UNK

REACTIONS (1)
  - Drug hypersensitivity [Unknown]
